FAERS Safety Report 6660753-9 (Version None)
Quarter: 2010Q1

REPORT INFORMATION
  Report Type: 
  Country: None (occurrence: None)
  Receive Date: 20100331
  Receipt Date: 20100323
  Transmission Date: 20100710
  Serious: Yes (Disabling, Other)
  Sender: FDA-Public Use
  Company Number: US-PURDUE-USA-2010-0042916

PATIENT
  Sex: Male

DRUGS (3)
  1. OXYCONTIN [Suspect]
     Indication: DRUG ABUSE
  2. COCAINE [Suspect]
     Indication: DRUG ABUSE
  3. ALCOHOL [Suspect]
     Indication: DRUG ABUSE

REACTIONS (3)
  - AGGRESSION [None]
  - IMPRISONMENT [None]
  - SUBSTANCE ABUSE [None]
